FAERS Safety Report 7553633-8 (Version None)
Quarter: 2011Q2

REPORT INFORMATION
  Report Type: 
  Country: None (occurrence: None)
  Receive Date: 20110617
  Receipt Date: 20100518
  Transmission Date: 20111010
  Serious: No
  Sender: FDA-Public Use
  Company Number: US-MYLANLABS-2010S1007945

PATIENT
  Sex: Female

DRUGS (2)
  1. AVALIDE [Concomitant]
  2. OMEPRAZOLE [Suspect]
     Indication: OESOPHAGEAL PAIN

REACTIONS (4)
  - INTESTINAL FUNCTIONAL DISORDER [None]
  - OESOPHAGEAL PAIN [None]
  - DRUG EFFECT DECREASED [None]
  - DIARRHOEA [None]
